FAERS Safety Report 9900193 (Version 3)
Quarter: 2014Q1

REPORT INFORMATION
  Report Type: Report from Study
  Country: CA (occurrence: CA)
  Receive Date: 20140214
  Receipt Date: 20140220
  Transmission Date: 20141002
  Serious: Yes (Other)
  Sender: FDA-Public Use
  Company Number: CA-ABBVIE-13P-028-1170143-00

PATIENT
  Sex: Female

DRUGS (2)
  1. HUMIRA [Suspect]
     Indication: PSORIASIS
     Route: 058
     Dates: start: 20071211, end: 2013
  2. HUMIRA [Suspect]
     Route: 058
     Dates: start: 20140128

REACTIONS (2)
  - Neck mass [Recovered/Resolved]
  - Skin disorder [Not Recovered/Not Resolved]
